FAERS Safety Report 6912556-5 (Version None)
Quarter: 2010Q3

REPORT INFORMATION
  Report Type: 
  Country: None (occurrence: None)
  Receive Date: 20100806
  Receipt Date: 20080716
  Transmission Date: 20110219
  Serious: No
  Sender: FDA-Public Use
  Company Number: US-PFIZER INC-2008059741

PATIENT
  Sex: Female
  Weight: 45.36 kg

DRUGS (5)
  1. NORPACE CR [Suspect]
     Indication: ATRIAL FIBRILLATION
     Route: 048
     Dates: start: 20080601
  2. CALCIUM CHANNEL BLOCKERS [Concomitant]
  3. COZAAR [Concomitant]
  4. COUMADIN [Concomitant]
  5. LOPRESSOR [Concomitant]

REACTIONS (1)
  - FATIGUE [None]
